FAERS Safety Report 23825319 (Version 1)
Quarter: 2024Q2

REPORT INFORMATION
  Report Type: Spontaneous
  Country: CN (occurrence: CN)
  Receive Date: 20240507
  Receipt Date: 20240507
  Transmission Date: 20240716
  Serious: Yes (Life-Threatening)
  Sender: FDA-Public Use
  Company Number: CN-BAYER-2024A067219

PATIENT
  Age: 58 Year
  Sex: Female

DRUGS (2)
  1. STIVARGA [Suspect]
     Active Substance: REGORAFENIB\REGORAFENIB MONOHYDRATE
     Indication: Colon cancer metastatic
     Dosage: 80 MG, QD
     Route: 048
     Dates: start: 20240417, end: 20240430
  2. RALTITREXED [Suspect]
     Active Substance: RALTITREXED
     Indication: Colon cancer metastatic
     Dosage: 4 MG, QD
     Route: 033
     Dates: start: 20240417, end: 20240430

REACTIONS (2)
  - Myelosuppression [Recovering/Resolving]
  - Off label use [None]

NARRATIVE: CASE EVENT DATE: 20240417
